FAERS Safety Report 4587191-7 (Version None)
Quarter: 2005Q1

REPORT INFORMATION
  Report Type: 
  Country: None (occurrence: None)
  Receive Date: 20050215
  Receipt Date: 20050203
  Transmission Date: 20050727
  Serious: Yes (Hospitalization)
  Sender: FDA-Public Use
  Company Number: 2005UW02035

PATIENT
  Age: 86 Year
  Sex: Male
  Weight: 73.0291 kg

DRUGS (1)
  1. IRESSA [Suspect]
     Indication: LUNG NEOPLASM MALIGNANT
     Dosage: 10 MG PO
     Route: 048
     Dates: start: 20040209, end: 20040925

REACTIONS (3)
  - ABDOMINAL PAIN [None]
  - COLOSTOMY [None]
  - SCAN ABDOMEN ABNORMAL [None]
